FAERS Safety Report 5573127-9 (Version None)
Quarter: 2007Q4

REPORT INFORMATION
  Report Type: 
  Country: None (occurrence: None)
  Receive Date: 20071220
  Receipt Date: 20071220
  Transmission Date: 20080405
  Serious: Yes (Hospitalization)
  Sender: FDA-Public Use
  Company Number: None

PATIENT
  Age: 75 Year
  Sex: Male

DRUGS (2)
  1. ASPIRIN [Suspect]
     Indication: DEEP VEIN THROMBOSIS
     Dosage: 325MG  EVERY DAY  PO
     Route: 048
     Dates: start: 20071031, end: 20071213
  2. CLOPIDOGREL [Suspect]
     Dosage: 75MG  EVERY DAY  PO
     Route: 048
     Dates: start: 20071017, end: 20071213

REACTIONS (1)
  - GASTRIC HAEMORRHAGE [None]
